FAERS Safety Report 25348022 (Version 1)
Quarter: 2025Q2

REPORT INFORMATION
  Report Type: Spontaneous
  Country: US (occurrence: US)
  Receive Date: 20250522
  Receipt Date: 20250522
  Transmission Date: 20250716
  Serious: Yes (Hospitalization)
  Sender: BRISTOL-MYERS SQUIBB COMPANY
  Company Number: US-BRISTOL-MYERS SQUIBB COMPANY-2025-070355

PATIENT
  Age: 54 Year
  Sex: Female

DRUGS (2)
  1. IDHIFA [Suspect]
     Active Substance: ENASIDENIB MESYLATE
     Indication: Acute myeloid leukaemia recurrent
     Route: 048
     Dates: start: 202504
  2. GILTERITINIB [Concomitant]
     Active Substance: GILTERITINIB

REACTIONS (1)
  - Hospitalisation [Unknown]
